FAERS Safety Report 5134771-6 (Version None)
Quarter: 2006Q4

REPORT INFORMATION
  Report Type: 
  Country: None (occurrence: None)
  Receive Date: 20061025
  Receipt Date: 20060822
  Transmission Date: 20070319
  Serious: Yes (Hospitalization)
  Sender: FDA-Public Use
  Company Number: US-ROCHE-460700

PATIENT
  Age: 55 Year
  Sex: Female

DRUGS (4)
  1. PEGASYS [Suspect]
     Dosage: ROUTE REPORTED AS INJ.
     Route: 050
     Dates: start: 20060501, end: 20060622
  2. PEGASYS [Suspect]
     Route: 050
     Dates: start: 20060908, end: 20061013
  3. COPEGUS [Suspect]
     Route: 048
     Dates: start: 20060501, end: 20060622
  4. COPEGUS [Suspect]
     Route: 048
     Dates: start: 20060908, end: 20061013

REACTIONS (2)
  - ANAEMIA HAEMOLYTIC AUTOIMMUNE [None]
  - HAEMOGLOBIN DECREASED [None]
